FAERS Safety Report 18014165 (Version 1)
Quarter: 2020Q3

REPORT INFORMATION
  Report Type: Spontaneous
  Country: US (occurrence: US)
  Receive Date: 20200713
  Receipt Date: 20200713
  Transmission Date: 20201103
  Serious: Yes (Hospitalization, Other)
  Sender: FDA-Public Use
  Company Number: None

PATIENT
  Age: 74 Year
  Sex: Male
  Weight: 84 kg

DRUGS (1)
  1. REMDESIVIR (EUA) (REMDESIVIR (EUA)) [Suspect]
     Active Substance: REMDESIVIR
     Indication: COVID-19 PNEUMONIA
     Route: 042
     Dates: start: 20200603, end: 20200605

REACTIONS (6)
  - Hyperhidrosis [None]
  - Abdominal pain [None]
  - Nausea [None]
  - Vomiting [None]
  - Infusion related reaction [None]
  - Diarrhoea [None]

NARRATIVE: CASE EVENT DATE: 20200606
